FAERS Safety Report 7357621-6 (Version None)
Quarter: 2011Q1

REPORT INFORMATION
  Report Type: 
  Country: None (occurrence: None)
  Receive Date: 20110309
  Receipt Date: 20110223
  Transmission Date: 20110831
  Serious: Yes (Other)
  Sender: FDA-Public Use
  Company Number: 028219

PATIENT
  Sex: Male

DRUGS (3)
  1. ZYRTEC [Suspect]
     Indication: RHINITIS
     Dosage: 5 MG, BID, ORAL; 10 MG QD, ORAL
     Route: 048
     Dates: start: 20110121, end: 20110224
  2. ZYRTEC [Suspect]
     Indication: RHINITIS
     Dosage: 5 MG, BID, ORAL; 10 MG QD, ORAL
     Route: 048
     Dates: start: 19980601, end: 19980716
  3. XYZAL [Suspect]
     Indication: RHINITIS
     Dosage: 5 MG QD, ORAL
     Route: 048
     Dates: start: 20110121

REACTIONS (1)
  - LIVER FUNCTION TEST ABNORMAL [None]
